FAERS Safety Report 21124552 (Version 2)
Quarter: 2022Q3

REPORT INFORMATION
  Report Type: Spontaneous
  Country: US (occurrence: US)
  Receive Date: 20220725
  Receipt Date: 20220808
  Transmission Date: 20221027
  Serious: No
  Sender: FDA-Public Use
  Company Number: US-LUPIN PHARMACEUTICALS INC.-2022-09665

PATIENT
  Age: 30 Year
  Sex: Female

DRUGS (11)
  1. METHYLPHENIDATE [Suspect]
     Active Substance: METHYLPHENIDATE
     Indication: Narcolepsy
     Dosage: 20 MG
     Route: 065
  2. METHYLPHENIDATE [Suspect]
     Active Substance: METHYLPHENIDATE
     Dosage: 5 MG, BID
     Route: 065
  3. METHYLPHENIDATE [Suspect]
     Active Substance: METHYLPHENIDATE
     Dosage: UNK 10-15 MG
     Route: 065
  4. METHYLPHENIDATE [Suspect]
     Active Substance: METHYLPHENIDATE
     Dosage: 10 MG, TID
     Route: 065
  5. METHYLPHENIDATE [Suspect]
     Active Substance: METHYLPHENIDATE
     Dosage: 10 MG, QID
     Route: 065
  6. METHYLPHENIDATE [Suspect]
     Active Substance: METHYLPHENIDATE
     Dosage: 54 MG, CONTROLLED RELEASE
     Route: 065
  7. METHYLPHENIDATE [Suspect]
     Active Substance: METHYLPHENIDATE
     Dosage: 36 MG, CONTROLLED RELEASE
     Route: 065
  8. SERTRALINE [Suspect]
     Active Substance: SERTRALINE HYDROCHLORIDE
     Indication: Cataplexy
     Dosage: 100 MG
     Route: 065
  9. VITAMIN B6 [Suspect]
     Active Substance: PYRIDOXINE HYDROCHLORIDE
     Indication: Vitamin supplementation
     Dosage: UNK
     Route: 065
  10. DOXYLAMINE [Suspect]
     Active Substance: DOXYLAMINE
     Indication: Insomnia
     Dosage: 100 MG
     Route: 065
  11. URSODIOL [Suspect]
     Active Substance: URSODIOL
     Indication: Cholestasis
     Dosage: 300 MG, BID
     Route: 065

REACTIONS (4)
  - Exposure during pregnancy [Unknown]
  - Normal newborn [Unknown]
  - Maternal exposure during breast feeding [Unknown]
  - Off label use [Unknown]
